FAERS Safety Report 17555668 (Version 1)
Quarter: 2020Q1

REPORT INFORMATION
  Report Type: Spontaneous
  Country: US (occurrence: US)
  Receive Date: 20200318
  Receipt Date: 20200318
  Transmission Date: 20200409
  Serious: No
  Sender: FDA-Public Use
  Company Number: US-009507513-2003USA006695

PATIENT
  Age: 23 Year
  Sex: Female

DRUGS (2)
  1. HORMONAL CONTRACEPTIVES (UNSPECIFIED) [Concomitant]
     Active Substance: UNSPECIFIED INGREDIENT
     Dosage: UNK
  2. ALBUTEROL SULFATE. [Suspect]
     Active Substance: ALBUTEROL SULFATE
     Indication: ASTHMA
     Dosage: AS NEEDED, BUT USES TWICE DAILY
     Dates: start: 2019, end: 20200315

REACTIONS (3)
  - Poor quality device used [Unknown]
  - Product dose omission [Unknown]
  - Product quality issue [Unknown]

NARRATIVE: CASE EVENT DATE: 20200315
